FAERS Safety Report 4522481-5 (Version None)
Quarter: 2004Q4

REPORT INFORMATION
  Report Type: 
  Country: None (occurrence: None)
  Receive Date: 20041207
  Receipt Date: 20041124
  Transmission Date: 20050328
  Serious: Yes (Other)
  Sender: FDA-Public Use
  Company Number: 200415427BCC

PATIENT
  Sex: Female
  Weight: 77.5651 kg

DRUGS (4)
  1. ALEVE [Suspect]
     Indication: FRACTURE
     Dosage: 440 MG, HS, ORAL
     Route: 048
  2. ATIVAN [Concomitant]
     Indication: PAIN
  3. IPATROPIUM BROMIDE [Concomitant]
  4. NEXIUM [Concomitant]

REACTIONS (4)
  - ASTHENIA [None]
  - BLOOD URINE [None]
  - DIZZINESS [None]
  - DYSPNOEA [None]
